FAERS Safety Report 24642649 (Version 1)
Quarter: 2024Q4

REPORT INFORMATION
  Report Type: Spontaneous
  Country: CH (occurrence: CH)
  Receive Date: 20241120
  Receipt Date: 20241120
  Transmission Date: 20250114
  Serious: Yes (Life-Threatening, Hospitalization, Other)
  Sender: TEVA
  Company Number: CH-TEVA-VS-3261989

PATIENT
  Age: 45 Year
  Sex: Male

DRUGS (7)
  1. LAMOTRIGINE [Suspect]
     Active Substance: LAMOTRIGINE
     Indication: Product used for unknown indication
     Dosage: MEPHA
     Route: 048
     Dates: start: 202401, end: 2024
  2. LAMOTRIGINE [Suspect]
     Active Substance: LAMOTRIGINE
     Indication: Product used for unknown indication
     Dosage: MEPHA
     Route: 048
     Dates: start: 20240611, end: 202406
  3. LAMOTRIGINE [Suspect]
     Active Substance: LAMOTRIGINE
     Indication: Product used for unknown indication
     Dosage: MEPHA
     Route: 048
     Dates: start: 20240614, end: 202406
  4. LAMOTRIGINE [Suspect]
     Active Substance: LAMOTRIGINE
     Indication: Product used for unknown indication
     Dosage: MEPHA
     Route: 048
     Dates: start: 20240624, end: 2024
  5. LAMOTRIGINE [Suspect]
     Active Substance: LAMOTRIGINE
     Indication: Product used for unknown indication
     Dosage: MEPHA
     Route: 048
     Dates: start: 20241003, end: 202410
  6. LORAZEPAM [Concomitant]
     Active Substance: LORAZEPAM
     Indication: Seizure prophylaxis
     Route: 065
  7. DIAZEPAM [Concomitant]
     Active Substance: DIAZEPAM
     Indication: Seizure prophylaxis
     Route: 065
     Dates: end: 2024

REACTIONS (24)
  - Generalised tonic-clonic seizure [Unknown]
  - Renal impairment [Unknown]
  - Product substitution issue [Unknown]
  - Mean cell volume decreased [Unknown]
  - Mean cell haemoglobin decreased [Unknown]
  - White blood cell count increased [Unknown]
  - Immature granulocyte count increased [Unknown]
  - Neutrophil count increased [Unknown]
  - Eosinophil count decreased [Unknown]
  - Lymphocyte count decreased [Unknown]
  - Drug level increased [Unknown]
  - Alanine aminotransferase increased [Recovering/Resolving]
  - Blood glucose increased [Unknown]
  - Haemoglobin decreased [Unknown]
  - Haematocrit decreased [Unknown]
  - Blood creatine phosphokinase increased [Unknown]
  - Activated partial thromboplastin time shortened [Unknown]
  - Myoglobin urine absent [Unknown]
  - Urinary sediment present [Unknown]
  - Aspartate aminotransferase increased [Unknown]
  - Fatigue [Unknown]
  - Insomnia [Unknown]
  - Disorientation [Unknown]
  - Dysarthria [Unknown]

NARRATIVE: CASE EVENT DATE: 20240101
